FAERS Safety Report 18932512 (Version 1)
Quarter: 2021Q1

REPORT INFORMATION
  Report Type: Spontaneous
  Country: FR (occurrence: FR)
  Receive Date: 20210224
  Receipt Date: 20210224
  Transmission Date: 20210420
  Serious: Yes (Other)
  Sender: FDA-Public Use
  Company Number: FR-CADILA HEALTHCARE LIMITED-FR-ZYDUS-062098

PATIENT

DRUGS (4)
  1. RISPERIDONE. [Suspect]
     Active Substance: RISPERIDONE
     Indication: DELUSIONAL DISORDER, UNSPECIFIED TYPE
     Dosage: UNK
     Route: 065
  2. LOXAPINE. [Suspect]
     Active Substance: LOXAPINE
     Indication: DELUSIONAL DISORDER, UNSPECIFIED TYPE
     Dosage: UNK
     Route: 065
  3. QUETIAPINE. [Suspect]
     Active Substance: QUETIAPINE
     Indication: DELUSIONAL DISORDER, UNSPECIFIED TYPE
     Dosage: UNK
     Route: 065
  4. ARIPIPRAZOLE. [Suspect]
     Active Substance: ARIPIPRAZOLE
     Indication: DELUSIONAL DISORDER, UNSPECIFIED TYPE
     Dosage: UNK
     Route: 065

REACTIONS (8)
  - Amenorrhoea [Unknown]
  - Extrapyramidal disorder [Unknown]
  - Drug ineffective [Unknown]
  - Constipation [Unknown]
  - Weight increased [Unknown]
  - Galactorrhoea [Unknown]
  - Dystonia [Unknown]
  - Hyperphagia [Unknown]
